FAERS Safety Report 4457203-X (Version None)
Quarter: 2004Q3

REPORT INFORMATION
  Report Type: 
  Country: None (occurrence: None)
  Receive Date: 20040922
  Receipt Date: 20040910
  Transmission Date: 20050211
  Serious: Yes (Other)
  Sender: FDA-Public Use
  Company Number: 10062215-NA01-1

PATIENT
  Sex: 0

DRUGS (1)
  1. NAFCILLIN SODIUM [Suspect]
     Dosage: IV
     Route: 042

REACTIONS (1)
  - RENAL FAILURE ACUTE [None]
